FAERS Safety Report 8193624 (Version 4)
Quarter: 2013Q2

REPORT INFORMATION
  Report Type: Spontaneous
  Country: CA (occurrence: CA)
  Receive Date: 20111021
  Receipt Date: 20130404
  Transmission Date: 20140414
  Serious: Yes (Other)
  Sender: FDA-Public Use
  Company Number: CA-ROCHE-GNE316609

PATIENT
  Age: 79 Year
  Sex: Male

DRUGS (4)
  1. XOLAIR [Suspect]
     Indication: ASTHMA
     Route: 058
     Dates: start: 20090424, end: 20110323
  2. XOLAIR [Suspect]
     Route: 058
     Dates: start: 20121012
  3. XOLAIR [Suspect]
     Route: 058
     Dates: start: 20130104
  4. XOLAIR [Suspect]
     Route: 065
     Dates: start: 20130329

REACTIONS (4)
  - Thrombocytopenia [Unknown]
  - Blood pressure increased [Not Recovered/Not Resolved]
  - Heart rate increased [Not Recovered/Not Resolved]
  - Heart rate decreased [Unknown]
